FAERS Safety Report 17824388 (Version 1)
Quarter: 2020Q2

REPORT INFORMATION
  Report Type: Spontaneous
  Country: US (occurrence: US)
  Receive Date: 20200526
  Receipt Date: 20200526
  Transmission Date: 20200714
  Serious: Yes (Other)
  Sender: FDA-Public Use
  Company Number: US-MYLANLABS-2020M1051220

PATIENT
  Sex: Female

DRUGS (1)
  1. LITHIUM. [Suspect]
     Active Substance: LITHIUM
     Indication: PRODUCT USED FOR UNKNOWN INDICATION
     Dosage: UNK

REACTIONS (6)
  - Blindness [Unknown]
  - Dizziness [Unknown]
  - Haemorrhage [Unknown]
  - Cardiac disorder [Unknown]
  - Renal disorder [Unknown]
  - Thyroid disorder [Unknown]
